FAERS Safety Report 8246799-8 (Version None)
Quarter: 2012Q1

REPORT INFORMATION
  Report Type: 
  Country: None (occurrence: None)
  Receive Date: 20120330
  Receipt Date: 20120329
  Transmission Date: 20120608
  Serious: Yes (Hospitalization)
  Sender: FDA-Public Use
  Company Number: FR-PFIZER INC-2011074893

PATIENT
  Age: 33 Year
  Sex: Male
  Weight: 84 kg

DRUGS (34)
  1. PIPERACILLIN AND TAZOBACTAM [Suspect]
     Dosage: 1 DF, 4X/DAY
     Route: 042
     Dates: start: 20101126, end: 20101201
  2. IMIPENEM AND CILASTATIN SODIUM [Suspect]
     Dosage: 1 G, 3X/DAY
     Route: 042
     Dates: start: 20101202, end: 20101208
  3. CLAVULANATE POTASSIUM [Suspect]
     Dosage: 1 DF, 3X/DAY
     Route: 042
     Dates: start: 20101207, end: 20101227
  4. NICOTINE [Concomitant]
     Dosage: 1 THEN 2 MG/DAY (MAX 6/DAY)
     Dates: start: 20101126, end: 20101207
  5. ZOVIRAX [Suspect]
     Indication: MOUTH ULCERATION
     Dosage: 500 MG, 3X/DAY
     Route: 042
     Dates: start: 20101202, end: 20101210
  6. SYMBICORT [Suspect]
     Dosage: 1 DF, 2X/DAY
     Route: 055
     Dates: start: 20101202
  7. OMEPRAZOLE [Concomitant]
     Dosage: 20 MG DAILY
     Dates: start: 20101126
  8. NICOTINE [Concomitant]
     Dosage: 21 MG/24 H
  9. ATROVENT [Concomitant]
     Dosage: UNK
     Dates: start: 20101203, end: 20101223
  10. BRICANYL [Concomitant]
     Dosage: UNK
     Dates: start: 20101203, end: 20101223
  11. IDARUBICIN HCL [Suspect]
     Indication: ACUTE MYELOID LEUKAEMIA
     Dosage: 24 MG, ALTERNATE DAY
     Route: 042
     Dates: start: 20101126, end: 20101130
  12. IMODIUM [Concomitant]
     Dosage: 2 CAPSULES DAILY
     Dates: start: 20101126, end: 20101207
  13. NICORETTE [Suspect]
     Dosage: 10 MG, 6X/DAY
     Route: 055
     Dates: start: 20101127, end: 20101210
  14. COLISTIN SULFATE [Suspect]
     Dosage: 2 DF, 3X/DAY
     Route: 048
     Dates: start: 20101126, end: 20101216
  15. EMEND [Suspect]
     Dosage: 1 DF, 1X/DAY
     Route: 048
     Dates: start: 20101126, end: 20101206
  16. EFFEXOR [Concomitant]
     Dosage: 75 MG, 1X/DAY
  17. FASTURTEC [Concomitant]
     Indication: TUMOUR LYSIS SYNDROME
     Dosage: 18 MG DAILY
     Route: 042
     Dates: start: 20101126, end: 20101127
  18. IDARAC [Concomitant]
     Dosage: 2 TABLETS PER DAY
     Dates: start: 20101210, end: 20101215
  19. ATARAX [Concomitant]
     Dosage: 25 MG, 2X/DAY
     Dates: start: 20101207, end: 20101221
  20. VFEND [Suspect]
     Indication: ASPERGILLOSIS
     Dosage: 400 MG, 2X/DAY
     Route: 042
     Dates: start: 20101206, end: 20101218
  21. VANCOMYCIN HCL [Suspect]
     Dosage: 1 G, 2X/DAY
     Route: 042
     Dates: start: 20101202, end: 20101207
  22. CIPROFLOXACIN [Suspect]
     Dosage: 1 DF, 2X/DAY
     Route: 042
     Dates: start: 20101202, end: 20101207
  23. NOXAFIL [Suspect]
     Dosage: 200 MG, 3X/DAY
     Route: 042
     Dates: start: 20101202, end: 20101206
  24. DEXAMETHASONE ACETATE [Suspect]
     Dosage: 20 MG, 1X/DAY
     Route: 048
     Dates: start: 20101126, end: 20101129
  25. CLOTTAFACT [Concomitant]
     Indication: DISSEMINATED INTRAVASCULAR COAGULATION
     Dosage: 18 G DURING THE FIRST FIVE DAYS
     Dates: start: 20101126, end: 20101130
  26. SOLIAN [Concomitant]
     Dosage: 600 MG, 1X/DAY
  27. MORPHINE [Concomitant]
     Dosage: 20 MG, UNK
     Route: 042
     Dates: start: 20101202, end: 20101216
  28. GENTAMICIN [Suspect]
     Dosage: 2 DF, 3X/DAY
     Route: 048
     Dates: start: 20101126, end: 20101216
  29. OXAZEPAM [Concomitant]
     Dosage: 10 MG, (3X/DAY MAX)
  30. ZOFRAN [Concomitant]
     Dosage: 8 MG, 2X/DAY
     Dates: start: 20101126, end: 20101206
  31. CYTARABINE [Suspect]
     Indication: ACUTE MYELOID LEUKAEMIA
     Dosage: 400 MG/M2
     Route: 042
     Dates: start: 20101126, end: 20101202
  32. SPIRIVA [Suspect]
     Dosage: 1 DF, 1X/DAY
     Route: 055
  33. TARGOCID [Suspect]
     Dosage: 400 MG, 2X/DAY
     Dates: start: 20101207, end: 20101227
  34. VESANOID [Suspect]
     Indication: ACUTE MYELOID LEUKAEMIA
     Dosage: 90 MG, 1X/DAY
     Route: 048
     Dates: start: 20101126, end: 20101215

REACTIONS (2)
  - CONDITION AGGRAVATED [None]
  - NECROTISING ULCERATIVE GINGIVOSTOMATITIS [None]
